FAERS Safety Report 12577353 (Version 2)
Quarter: 2016Q3

REPORT INFORMATION
  Report Type: Spontaneous
  Country: IL (occurrence: IL)
  Receive Date: 20160720
  Receipt Date: 20160815
  Transmission Date: 20161109
  Serious: Yes (Other)
  Sender: FDA-Public Use
  Company Number: IL-TAKEDA-2016TUS004697

PATIENT
  Age: 21 Year
  Sex: Female

DRUGS (1)
  1. ENTYVIO [Suspect]
     Active Substance: VEDOLIZUMAB
     Indication: CROHN^S DISEASE
     Dosage: 300 MG, UNK
     Route: 042
     Dates: start: 201509, end: 20151217

REACTIONS (4)
  - Abortion [Unknown]
  - Treatment noncompliance [Unknown]
  - Drug ineffective [Unknown]
  - Pregnancy [Unknown]
